FAERS Safety Report 6550749-X (Version None)
Quarter: 2010Q1

REPORT INFORMATION
  Report Type: 
  Country: None (occurrence: None)
  Receive Date: 20100125
  Receipt Date: 20100114
  Transmission Date: 20100710
  Serious: Yes (Other)
  Sender: FDA-Public Use
  Company Number: PHHY2010GB02625

PATIENT
  Age: 63 Year
  Sex: Male

DRUGS (10)
  1. TERBINAFINE [Suspect]
     Indication: ONYCHOMYCOSIS
     Dosage: 250 MG, UNK
     Route: 048
     Dates: start: 20090624, end: 20091125
  2. AMLODIPINE [Concomitant]
     Dosage: 10 MG, QD
     Route: 048
  3. ATORVASTATIN CALCIUM [Concomitant]
     Dosage: 10 MG, QD
     Route: 048
  4. BECLOMETHASONE DIPROPIONATE [Concomitant]
     Dosage: UNK
     Route: 045
  5. BENDROFLUMETHIAZIDE [Concomitant]
     Dosage: 2.5 MG, QD
     Route: 048
  6. DOXAZOSIN MESYLATE [Concomitant]
     Dosage: 4 MG, QD
     Route: 048
  7. EXENATIDE [Concomitant]
     Indication: TYPE 2 DIABETES MELLITUS
     Dosage: 60 UG, UNK
  8. METFORMIN [Concomitant]
     Dosage: 500 MG, BID
     Route: 048
  9. RAMIPRIL [Concomitant]
     Dosage: 5 MG, BID
     Route: 048
  10. SODIUM CROMOGLICATE [Concomitant]
     Dosage: 1 DF, PRN
     Route: 047

REACTIONS (2)
  - GLOMERULAR FILTRATION RATE DECREASED [None]
  - RENAL IMPAIRMENT [None]
